FAERS Safety Report 5610482-5 (Version None)
Quarter: 2008Q1

REPORT INFORMATION
  Report Type: 
  Country: None (occurrence: None)
  Receive Date: 20080111
  Receipt Date: 20071026
  Transmission Date: 20080703
  Serious: Yes (Other)
  Sender: FDA-Public Use
  Company Number: HQWYE241519JUL04

PATIENT
  Age: 53 Year
  Sex: Female

DRUGS (5)
  1. PREMPRO [Suspect]
     Indication: HORMONE REPLACEMENT THERAPY
  2. MEDROXYPROGESTERONE [Suspect]
  3. PREMARIN [Suspect]
  4. PROVERA [Suspect]
  5. ESTROGENIC SUBSTANCE [Suspect]

REACTIONS (2)
  - DEEP VEIN THROMBOSIS [None]
  - PULMONARY EMBOLISM [None]
